FAERS Safety Report 23618302 (Version 1)
Quarter: 2024Q1

REPORT INFORMATION
  Report Type: Report from Study
  Country: TW (occurrence: TW)
  Receive Date: 20240311
  Receipt Date: 20240311
  Transmission Date: 20240409
  Serious: Yes (Hospitalization)
  Sender: FDA-Public Use
  Company Number: TW-ABBVIE-5670032

PATIENT
  Age: 52 Year
  Sex: Female
  Weight: 51 kg

DRUGS (1)
  1. HUMIRA [Suspect]
     Active Substance: ADALIMUMAB
     Indication: Rheumatoid arthritis
     Route: 058
     Dates: start: 20160926

REACTIONS (5)
  - Swelling of eyelid [Unknown]
  - Swelling face [Unknown]
  - Herpes zoster [Recovering/Resolving]
  - Blister [Unknown]
  - Lung disorder [Unknown]

NARRATIVE: CASE EVENT DATE: 20240304
